FAERS Safety Report 19113316 (Version 1)
Quarter: 2021Q2

REPORT INFORMATION
  Report Type: Spontaneous
  Country: MX (occurrence: MX)
  Receive Date: 20210408
  Receipt Date: 20210408
  Transmission Date: 20210717
  Serious: Yes (Hospitalization, Other)
  Sender: FDA-Public Use
  Company Number: NVSC2020MX349327

PATIENT
  Age: 67 Year
  Sex: Male

DRUGS (5)
  1. RIVAROXABAN [Concomitant]
     Active Substance: RIVAROXABAN
     Indication: MYOCARDIAL ISCHAEMIA
     Dosage: UNK
     Route: 065
  2. LEVOTHYROXINE. [Concomitant]
     Active Substance: LEVOTHYROXINE
     Indication: PRIMARY HYPOTHYROIDISM
     Dosage: UNK
     Route: 065
  3. ASPIRIN. [Concomitant]
     Active Substance: ASPIRIN
     Indication: MYOCARDIAL ISCHAEMIA
     Dosage: UNK
     Route: 065
  4. EVOLOCUMAB [Concomitant]
     Active Substance: EVOLOCUMAB
     Indication: DYSLIPIDAEMIA
     Dosage: UNK
     Route: 065
  5. ATORVASTATIN CALCIUM. [Suspect]
     Active Substance: ATORVASTATIN CALCIUM
     Indication: MYOCARDIAL ISCHAEMIA
     Dosage: UNK
     Route: 065

REACTIONS (11)
  - Face oedema [Recovered/Resolved]
  - Plasma cell myeloma [Unknown]
  - Benign prostatic hyperplasia [Unknown]
  - Oedema peripheral [Recovered/Resolved]
  - Cough [Unknown]
  - Respiratory symptom [Recovered/Resolved]
  - Product use in unapproved indication [Unknown]
  - Nephrotic syndrome [Unknown]
  - Eyelid oedema [Recovered/Resolved]
  - Dyspnoea [Unknown]
  - Renal amyloidosis [Unknown]

NARRATIVE: CASE EVENT DATE: 201611
